FAERS Safety Report 4389254-8 (Version None)
Quarter: 2004Q2

REPORT INFORMATION
  Report Type: 
  Country: None (occurrence: None)
  Receive Date: 20040628
  Receipt Date: 20040614
  Transmission Date: 20050107
  Serious: Yes (Hospitalization)
  Sender: FDA-Public Use
  Company Number: 04P-056-0257795-00

PATIENT
  Age: 53 Year
  Sex: Female
  Weight: 94 kg

DRUGS (24)
  1. HUMIRA [Suspect]
     Indication: POLYARTHRITIS
     Dosage: 1 IN 1 WK, SUBCUTANEOUS
     Route: 058
     Dates: start: 20030530, end: 20040301
  2. PREDNISONE [Concomitant]
  3. ACUILIX [Concomitant]
  4. CITALOPRAM [Concomitant]
  5. LEVOTHYROXINE SODIUM [Concomitant]
  6. BUPRENORPHINE HYDROCHLORIDE [Concomitant]
  7. MORPHINE SULFATE [Concomitant]
  8. ROFECOXIB [Concomitant]
  9. SULFASALAZINE [Concomitant]
  10. PREDNISONE [Concomitant]
  11. ETANERCEPT [Concomitant]
  12. ACETAMINOPHEN [Concomitant]
  13. CITALOPRAM HYDROBROMIDE [Concomitant]
  14. METHOTREXATE [Concomitant]
  15. HYDROCORTISONE [Concomitant]
  16. PENICILLAMINE [Concomitant]
  17. AUROTIOPROL [Concomitant]
  18. PYRITINOL HYDROCHLORIDE [Concomitant]
  19. HYDROXYCHLOROQUINE PHOSPHATE [Concomitant]
  20. TIOPRONIN [Concomitant]
  21. CYCLOSPORINE [Concomitant]
  22. LANSOPRAZOLE [Concomitant]
  23. LIBRAX [Concomitant]
  24. VERALIPRIDE [Concomitant]

REACTIONS (4)
  - LOCALISED INFECTION [None]
  - PHLEBITIS [None]
  - PULMONARY EMBOLISM [None]
  - SOFT TISSUE INFECTION [None]
